FAERS Safety Report 23045458 (Version 1)
Quarter: 2023Q4

REPORT INFORMATION
  Report Type: Spontaneous
  Country: US (occurrence: US)
  Receive Date: 20231009
  Receipt Date: 20231009
  Transmission Date: 20240109
  Serious: No
  Sender: FDA-Public Use
  Company Number: US-BEH-2023163995

PATIENT
  Age: 60 Year
  Sex: Female

DRUGS (33)
  1. HIZENTRA [Suspect]
     Active Substance: HUMAN IMMUNOGLOBULIN G
     Indication: Dermatomyositis
     Dosage: 24 GRAM, BIW
     Route: 058
     Dates: start: 20210130
  2. AIMOVIG [Concomitant]
     Active Substance: ERENUMAB-AOOE
  3. ARNUITY ELLIPTA [Concomitant]
     Active Substance: FLUTICASONE FUROATE
  4. BUPROPION [Concomitant]
     Active Substance: BUPROPION
  5. CITALOPRAM [Concomitant]
     Active Substance: CITALOPRAM HYDROBROMIDE
  6. CREON [Concomitant]
     Active Substance: PANCRELIPASE AMYLASE\PANCRELIPASE LIPASE\PANCRELIPASE PROTEASE
     Dosage: 12000 INTERNATIONAL UNIT
     Route: 065
  7. CREON [Concomitant]
     Active Substance: PANCRELIPASE AMYLASE\PANCRELIPASE LIPASE\PANCRELIPASE PROTEASE
     Dosage: 6000 UNK
     Route: 065
  8. DICYCLOMINE [Concomitant]
     Active Substance: DICYCLOMINE HYDROCHLORIDE
  9. EPINEPHRINE [Concomitant]
     Active Substance: EPINEPHRINE
  10. ERYTHROMYCIN [Concomitant]
     Active Substance: ERYTHROMYCIN
  11. ESTRADIOL [Concomitant]
     Active Substance: ESTRADIOL
  12. FLECAINIDE [Concomitant]
     Active Substance: FLECAINIDE
  13. HYDROCORT [HYDROCORTISONE] [Concomitant]
  14. HYDROCORT [HYDROCORTISONE] [Concomitant]
  15. INCRUSE ELLIPTA [Concomitant]
     Active Substance: UMECLIDINIUM BROMIDE
  16. LEUCOVORIN CALCIUM [Concomitant]
     Active Substance: LEUCOVORIN CALCIUM
  17. LEVOTHYROXINE [Concomitant]
     Active Substance: LEVOTHYROXINE
  18. METHOTREXATE [Concomitant]
     Active Substance: METHOTREXATE
  19. METHYLPREDNISOLONE [Concomitant]
     Active Substance: METHYLPREDNISOLONE
  20. METOPROLOL SUCCINATE [Concomitant]
     Active Substance: METOPROLOL SUCCINATE
     Dosage: 100 MILLIGRAM
     Route: 065
  21. METOPROLOL SUCCINATE [Concomitant]
     Active Substance: METOPROLOL SUCCINATE
     Dosage: 50 UNK
     Route: 065
  22. MONTELUKAST [Concomitant]
     Active Substance: MONTELUKAST SODIUM
  23. ONDANSETRON [Concomitant]
     Active Substance: ONDANSETRON
  24. PIMECROLIMUS [Concomitant]
     Active Substance: PIMECROLIMUS
  25. PREDNISONE [Concomitant]
     Active Substance: PREDNISONE
  26. PROMETHAZINE [Concomitant]
     Active Substance: PROMETHAZINE HYDROCHLORIDE
  27. RIZATRIPTAN [Concomitant]
     Active Substance: RIZATRIPTAN
  28. SUPREP BOWEL PREP [Concomitant]
     Active Substance: MAGNESIUM SULFATE\POTASSIUM SULFATE\SODIUM SULFATE
  29. TACROLIMUS [Concomitant]
     Active Substance: TACROLIMUS
  30. TOPIRAMATE [Concomitant]
     Active Substance: TOPIRAMATE
  31. VALSARTAN [Concomitant]
     Active Substance: VALSARTAN
  32. VENTOLIN HFA [Concomitant]
     Active Substance: ALBUTEROL SULFATE
  33. XARELTO [Concomitant]
     Active Substance: RIVAROXABAN

REACTIONS (5)
  - Fatigue [Recovered/Resolved]
  - Illness [Recovered/Resolved]
  - No adverse event [Unknown]
  - Product dose omission issue [Unknown]
  - Off label use [Unknown]

NARRATIVE: CASE EVENT DATE: 20230802
